FAERS Safety Report 8374004-0 (Version None)
Quarter: 2012Q2

REPORT INFORMATION
  Report Type: 
  Country: None (occurrence: None)
  Receive Date: 20120517
  Receipt Date: 20120517
  Transmission Date: 20120825
  Serious: No
  Sender: FDA-Public Use
  Company Number: None

PATIENT
  Age: 65 Year
  Sex: Female
  Weight: 99.7913 kg

DRUGS (2)
  1. CYMBALTA [Suspect]
     Indication: BACK PAIN
     Dosage: 60MG ONCE A DAY PO
     Route: 048
     Dates: start: 20120312, end: 20120515
  2. CYMBALTA [Suspect]
     Indication: DEPRESSION
     Dosage: 60MG ONCE A DAY PO
     Route: 048
     Dates: start: 20120312, end: 20120515

REACTIONS (9)
  - MYALGIA [None]
  - CONDITION AGGRAVATED [None]
  - ARTHRALGIA [None]
  - BONE PAIN [None]
  - PAIN IN EXTREMITY [None]
  - BACK PAIN [None]
  - NAUSEA [None]
  - JOINT STIFFNESS [None]
  - INADEQUATE ANALGESIA [None]
